APPROVED DRUG PRODUCT: NATEGLINIDE
Active Ingredient: NATEGLINIDE
Strength: 120MG
Dosage Form/Route: TABLET;ORAL
Application: A206432 | Product #002 | TE Code: AB
Applicant: CADILA PHARMACEUTICALS LTD
Approved: Apr 19, 2019 | RLD: No | RS: No | Type: RX